FAERS Safety Report 7124363-1 (Version None)
Quarter: 2010Q4

REPORT INFORMATION
  Report Type: 
  Country: None (occurrence: None)
  Receive Date: 20101126
  Receipt Date: 20101123
  Transmission Date: 20110411
  Serious: Yes (Hospitalization)
  Sender: FDA-Public Use
  Company Number: PHHY2010IT76222

PATIENT
  Sex: Male

DRUGS (5)
  1. STALEVO 100 [Suspect]
     Indication: MULTIPLE SYSTEM ATROPHY
     Dosage: 100 MG/25 MG/200 MG
     Route: 048
     Dates: start: 20070101
  2. RIVOTRIL [Concomitant]
     Dosage: UNK
     Route: 048
     Dates: start: 20070101
  3. TEGRETOL [Concomitant]
     Dosage: 2 DF DAILY
     Route: 048
     Dates: start: 20070101
  4. AZILECT [Concomitant]
     Dosage: 1 MG, DAILY
     Route: 048
  5. AMANTADINE HCL [Concomitant]
     Dosage: 100 MG, UNK
     Route: 048

REACTIONS (3)
  - HALLUCINATION, VISUAL [None]
  - MUSCULOSKELETAL STIFFNESS [None]
  - TREMOR [None]
